FAERS Safety Report 8548417-8 (Version None)
Quarter: 2012Q3

REPORT INFORMATION
  Report Type: 
  Country: None (occurrence: None)
  Receive Date: 20120717
  Receipt Date: 20120702
  Transmission Date: 20120928
  Serious: Yes (Disabling, Other)
  Sender: FDA-Public Use
  Company Number: PHHY2012JP024436

PATIENT
  Age: 82 Year
  Sex: Male
  Weight: 58 kg

DRUGS (13)
  1. AVASTIN [Suspect]
     Indication: AGE-RELATED MACULAR DEGENERATION
     Dates: start: 20100114, end: 20100114
  2. VISUDYNE [Suspect]
     Indication: AGE-RELATED MACULAR DEGENERATION
     Dates: start: 20100122, end: 20100122
  3. AVASTIN [Suspect]
     Indication: AGE-RELATED MACULAR DEGENERATION
     Dosage: 0.05 ML ONCE ET
     Dates: start: 20091001, end: 20091001
  4. HUSCODE [Concomitant]
  5. CATALIN [Concomitant]
  6. THEOLONG [Concomitant]
  7. LANSOPRAZOLE [Concomitant]
  8. LEVOFLOXACIN [Concomitant]
  9. MUCODYNE [Concomitant]
  10. MUCOSOLAN [Concomitant]
  11. VISUDYNE [Suspect]
     Indication: AGE-RELATED MACULAR DEGENERATION
     Dosage: 4.8 ML ONCE IV
     Route: 042
     Dates: start: 20091016, end: 20091016
  12. LUCENTIS [Suspect]
     Indication: AGE-RELATED MACULAR DEGENERATION
     Dosage: 0.05 ML ONCE ET
     Dates: start: 20091211
  13. DIAMOX [Concomitant]

REACTIONS (5)
  - RETINAL PIGMENT EPITHELIAL TEAR [None]
  - RETINAL HAEMORRHAGE [None]
  - DISEASE RECURRENCE [None]
  - CHOROIDAL NEOVASCULARISATION [None]
  - VISUAL ACUITY REDUCED [None]
